FAERS Safety Report 6150000-9 (Version None)
Quarter: 2009Q2

REPORT INFORMATION
  Report Type: 
  Country: None (occurrence: None)
  Receive Date: 20090409
  Receipt Date: 20090401
  Transmission Date: 20091009
  Serious: No
  Sender: FDA-Public Use
  Company Number: B0564634A

PATIENT
  Sex: Male
  Weight: 72 kg

DRUGS (3)
  1. LAMBIPOL [Suspect]
     Indication: BIPOLAR DISORDER
     Route: 048
  2. PAROXETINE HCL [Concomitant]
     Indication: DEPRESSION
     Dosage: 30MG PER DAY
     Route: 065
     Dates: start: 19990101
  3. XANAX [Concomitant]
     Indication: ANXIETY
     Dosage: 2MG PER DAY
     Route: 048
     Dates: start: 20010101

REACTIONS (4)
  - CLONUS [None]
  - GRIP STRENGTH DECREASED [None]
  - MYOCLONUS [None]
  - TREMOR [None]
